FAERS Safety Report 6871124-4 (Version None)
Quarter: 2010Q3

REPORT INFORMATION
  Report Type: 
  Country: None (occurrence: None)
  Receive Date: 20100723
  Receipt Date: 20100712
  Transmission Date: 20110219
  Serious: Yes (Hospitalization, Other)
  Sender: FDA-Public Use
  Company Number: US-PFIZER INC-2010039541

PATIENT
  Sex: Female

DRUGS (1)
  1. CHANTIX [Suspect]
     Indication: SMOKING CESSATION THERAPY
     Dosage: STARTER PACK TO CONTINUING PACK
     Dates: start: 20080101, end: 20080325

REACTIONS (10)
  - ANXIETY [None]
  - CARBON MONOXIDE POISONING [None]
  - CONFUSIONAL STATE [None]
  - DEPRESSION [None]
  - INTENTIONAL OVERDOSE [None]
  - MEMORY IMPAIRMENT [None]
  - MENTAL DISORDER [None]
  - MOOD SWINGS [None]
  - PARANOIA [None]
  - SUICIDE ATTEMPT [None]
